FAERS Safety Report 9413899 (Version 1)
Quarter: 2013Q3

REPORT INFORMATION
  Report Type: Spontaneous
  Country: US (occurrence: US)
  Receive Date: 20130723
  Receipt Date: 20130723
  Transmission Date: 20140515
  Serious: Yes (Hospitalization, Other)
  Sender: FDA-Public Use
  Company Number: US-SANOFI-AVENTIS-2013SA072955

PATIENT
  Age: 60 Year
  Sex: Male

DRUGS (1)
  1. AMBIEN CR [Suspect]
     Indication: SLEEP DISORDER
     Dosage: SHE THOUGHT HE USED THE 6.25 MG AND BRAND NAME, BUT WAS NOT SURE.
     Route: 048

REACTIONS (6)
  - Cerebrovascular accident [Unknown]
  - Vascular calcification [Unknown]
  - Cardiac arrest [Unknown]
  - Road traffic accident [Unknown]
  - Diplopia [Unknown]
  - Tremor [Unknown]
